FAERS Safety Report 17939120 (Version 1)
Quarter: 2020Q2

REPORT INFORMATION
  Report Type: Spontaneous
  Country: US (occurrence: US)
  Receive Date: 20200624
  Receipt Date: 20200624
  Transmission Date: 20200714
  Serious: No
  Sender: FDA-Public Use
  Company Number: US-SHIRE-US202002753

PATIENT
  Age: 59 Year
  Sex: Female

DRUGS (1)
  1. GATTEX [Suspect]
     Active Substance: TEDUGLUTIDE\WATER
     Indication: PRODUCT USED FOR UNKNOWN INDICATION
     Dosage: 0.340 UNK, 1X/DAY:QD
     Route: 058
     Dates: start: 20160425

REACTIONS (3)
  - Weight decreased [Not Recovered/Not Resolved]
  - Inappropriate schedule of product administration [Recovered/Resolved]
  - Gastrointestinal stoma output increased [Not Recovered/Not Resolved]

NARRATIVE: CASE EVENT DATE: 20200603
